FAERS Safety Report 18313918 (Version 2)
Quarter: 2020Q4

REPORT INFORMATION
  Report Type: Spontaneous
  Country: US (occurrence: US)
  Receive Date: 20200925
  Receipt Date: 20201229
  Transmission Date: 20210113
  Serious: Yes (Other)
  Sender: FDA-Public Use
  Company Number: US-RADIUS HEALTH INC.-2020US003251

PATIENT
  Sex: Female

DRUGS (2)
  1. LEVOTHYROXINE. [Concomitant]
     Active Substance: LEVOTHYROXINE
     Indication: HYPERTHYROIDISM
     Dosage: UNK
  2. TYMLOS [Suspect]
     Active Substance: ABALOPARATIDE
     Indication: OSTEOPOROSIS
     Dosage: 80 MCG, DAILY
     Route: 058
     Dates: start: 201911

REACTIONS (7)
  - Tooth fracture [Not Recovered/Not Resolved]
  - Nausea [Recovered/Resolved]
  - Tooth disorder [Not Recovered/Not Resolved]
  - Headache [Recovered/Resolved]
  - Tooth loss [Unknown]
  - Fatigue [Recovered/Resolved]
  - Bone hypertrophy [Not Recovered/Not Resolved]
